FAERS Safety Report 6156118-9 (Version None)
Quarter: 2009Q2

REPORT INFORMATION
  Report Type: 
  Country: None (occurrence: None)
  Receive Date: 20090413
  Receipt Date: 20090413
  Transmission Date: 20091009
  Serious: No
  Sender: FDA-Public Use
  Company Number: None

PATIENT
  Sex: Female
  Weight: 54.4316 kg

DRUGS (2)
  1. ZOLOFT [Suspect]
     Indication: ANXIETY DISORDER
     Dosage: 50-150  MG/DAY PO
     Route: 048
     Dates: start: 19970101, end: 20080101
  2. ZOLOFT [Suspect]
     Indication: PANIC DISORDER
     Dosage: 50-150  MG/DAY PO
     Route: 048
     Dates: start: 19970101, end: 20080101

REACTIONS (12)
  - ABNORMAL BEHAVIOUR [None]
  - AFFECTIVE DISORDER [None]
  - ANHEDONIA [None]
  - DECREASED INTEREST [None]
  - DEPRESSION [None]
  - DISTURBANCE IN ATTENTION [None]
  - EMOTIONAL DISORDER [None]
  - FEELING ABNORMAL [None]
  - FLAT AFFECT [None]
  - LOSS OF LIBIDO [None]
  - MENTAL DISORDER [None]
  - THINKING ABNORMAL [None]
